FAERS Safety Report 4639808-6 (Version None)
Quarter: 2005Q2

REPORT INFORMATION
  Report Type: 
  Country: None (occurrence: None)
  Receive Date: 20050420
  Receipt Date: 20050406
  Transmission Date: 20051028
  Serious: Yes (Disabling)
  Sender: FDA-Public Use
  Company Number: FR-SOLVAY-00205001169

PATIENT
  Sex: Female

DRUGS (3)
  1. ESTROGEL [Suspect]
     Indication: HORMONE REPLACEMENT THERAPY
     Dosage: DAILY DOSE:  UNKNOWN
     Route: 062
  2. ISOPTIN [Concomitant]
     Indication: ILL-DEFINED DISORDER
     Dosage: DAILY DOSE:  UNKNOWN
     Route: 065
  3. UTROGESTAN [Suspect]
     Indication: HORMONE REPLACEMENT THERAPY
     Dosage: DAILY DOSE:  UNKNOWN
     Route: 048

REACTIONS (3)
  - BLINDNESS [None]
  - DISEASE RECURRENCE [None]
  - RETINAL VEIN THROMBOSIS [None]
